FAERS Safety Report 8829902 (Version 2)
Quarter: 2012Q4

REPORT INFORMATION
  Report Type: 
  Country: AU (occurrence: AU)
  Receive Date: 20121008
  Receipt Date: 20121019
  Transmission Date: 20130627
  Serious: Yes (Disabling, Other)
  Sender: FDA-Public Use
  Company Number: PHHY2012AU088206

PATIENT
  Age: 75 Year
  Sex: Female

DRUGS (5)
  1. ACLASTA [Suspect]
     Indication: OSTEOPOROSIS
     Dosage: 5 mg,
     Route: 042
     Dates: start: 20111005
  2. OROXINE [Concomitant]
     Route: 048
  3. PANADOL [Concomitant]
     Dosage: 2 tablets as required
     Route: 048
  4. PRAVACHOL [Concomitant]
     Dosage: 40 mg, nightly
     Route: 048
  5. SOMAC [Concomitant]
     Dosage: 40 mg, BID
     Route: 048

REACTIONS (1)
  - Exostosis of jaw [Recovered/Resolved]
